FAERS Safety Report 8092381-5 (Version None)
Quarter: 2012Q1

REPORT INFORMATION
  Report Type: 
  Country: None (occurrence: None)
  Receive Date: 20120128
  Receipt Date: 20110824
  Transmission Date: 20120608
  Serious: No
  Sender: FDA-Public Use
  Company Number: US-ABBOTT-11P-163-0849190-00

PATIENT
  Age: 46 Year
  Sex: Male

DRUGS (4)
  1. HUMIRA [Suspect]
     Indication: PSORIASIS
     Dosage: STOPPED ABOUT 1 YR AGO FOR 2.5-3 MONTHS
  2. HUMIRA [Suspect]
  3. TOPICAL [Concomitant]
     Indication: PSORIASIS
     Dosage: PRN
  4. METFORMIN HCL [Concomitant]
     Indication: DIABETES MELLITUS
     Dosage: BID

REACTIONS (4)
  - INJECTION SITE PAIN [None]
  - MIGRAINE [None]
  - SINUSITIS [None]
  - PURULENT DISCHARGE [None]
